FAERS Safety Report 5759025-6 (Version None)
Quarter: 2008Q2

REPORT INFORMATION
  Report Type: 
  Country: None (occurrence: None)
  Receive Date: 20080604
  Receipt Date: 20080527
  Transmission Date: 20081010
  Serious: Yes (Hospitalization)
  Sender: FDA-Public Use
  Company Number: FR-SANOFI-SYNTHELABO-F01200800918

PATIENT
  Sex: Male
  Weight: 73 kg

DRUGS (5)
  1. FLUOROURACIL [Suspect]
     Route: 041
  2. PREDNISONE TAB [Concomitant]
  3. CETUXIMAB [Suspect]
     Route: 041
  4. OXALIPLATIN [Suspect]
     Indication: COLON CANCER
     Route: 041
  5. FOLINIC ACID [Suspect]
     Route: 041

REACTIONS (6)
  - ABSCESS [None]
  - CHILLS [None]
  - MUSCULOSKELETAL PAIN [None]
  - POLLAKIURIA [None]
  - PURPURA [None]
  - PYREXIA [None]
